FAERS Safety Report 5461130-9 (Version None)
Quarter: 2007Q3

REPORT INFORMATION
  Report Type: 
  Country: None (occurrence: None)
  Receive Date: 20070920
  Receipt Date: 20070918
  Transmission Date: 20080115
  Serious: Yes (Hospitalization, Other)
  Sender: FDA-Public Use
  Company Number: PHEH2007US09511

PATIENT
  Age: 63 Year
  Sex: Male

DRUGS (8)
  1. ZOMETA [Suspect]
     Indication: BONE LESION
     Dosage: 4 MG MONTHLY
     Route: 042
     Dates: start: 20070301, end: 20070601
  2. METFORMIN HCL [Concomitant]
     Indication: DIABETES MELLITUS
     Dosage: 100 MG, UNK
  3. ATENOLOL [Concomitant]
     Indication: BLOOD PRESSURE
     Dosage: 25 MG, UNK
  4. ATENOLOL [Concomitant]
     Dosage: 25 MG, UNK
  5. VYTORIN [Concomitant]
     Indication: BLOOD CHOLESTEROL
     Dosage: 10 MG, UNK
  6. ASPIRIN [Concomitant]
  7. CYTOXAN [Concomitant]
     Dosage: UNK, TID
  8. CYTOXAN [Concomitant]
     Dosage: UNK, TID

REACTIONS (9)
  - BLOOD GLUCOSE INCREASED [None]
  - BLOOD UREA INCREASED [None]
  - CALCULUS URINARY [None]
  - NEPHROLITHIASIS [None]
  - PAIN [None]
  - RENAL FAILURE ACUTE [None]
  - RENAL STONE REMOVAL [None]
  - STENT PLACEMENT [None]
  - URETHRAL OBSTRUCTION [None]
